FAERS Safety Report 6913719-5 (Version None)
Quarter: 2010Q3

REPORT INFORMATION
  Report Type: 
  Country: None (occurrence: None)
  Receive Date: 20100809
  Receipt Date: 20100730
  Transmission Date: 20110219
  Serious: Yes (Hospitalization)
  Sender: FDA-Public Use
  Company Number: JP-NOVOPROD-312398

PATIENT
  Age: 8 Year
  Sex: Male
  Weight: 21 kg

DRUGS (1)
  1. GLUCAGON [Suspect]
     Indication: GLUCAGON TOLERANCE TEST
     Dosage: 0.6 MG, QD
     Route: 058
     Dates: start: 20100723, end: 20100723

REACTIONS (4)
  - BLOOD PRESSURE DECREASED [None]
  - NAUSEA [None]
  - PALLOR [None]
  - SOMNOLENCE [None]
